FAERS Safety Report 5869753-X (Version None)
Quarter: 2008Q3

REPORT INFORMATION
  Report Type: 
  Country: None (occurrence: None)
  Receive Date: 20080904
  Receipt Date: 20080820
  Transmission Date: 20090109
  Serious: Yes (Other)
  Sender: FDA-Public Use
  Company Number: FR-ELI_LILLY_AND_COMPANY-FR200808004865

PATIENT
  Age: 48 Year
  Sex: Female

DRUGS (2)
  1. ALIMTA [Suspect]
     Dosage: UNK, UNKNOWN
     Route: 042
  2. CISPLATIN [Concomitant]
     Dosage: UNK, UNKNOWN
     Route: 042

REACTIONS (2)
  - GENERAL PHYSICAL HEALTH DETERIORATION [None]
  - HEPATOCELLULAR INJURY [None]
